FAERS Safety Report 16750681 (Version 3)
Quarter: 2019Q4

REPORT INFORMATION
  Report Type: Spontaneous
  Country: CA (occurrence: CA)
  Receive Date: 20190828
  Receipt Date: 20191120
  Transmission Date: 20200122
  Serious: Yes (Death, Life-Threatening, Hospitalization, Other)
  Sender: FDA-Public Use
  Company Number: CA-TEVA-2019-CA-1099103

PATIENT
  Age: 64 Year
  Sex: Female

DRUGS (8)
  1. IRON [Suspect]
     Active Substance: IRON
     Indication: PRODUCT USED FOR UNKNOWN INDICATION
     Route: 065
  2. IRON [Suspect]
     Active Substance: IRON
     Indication: END STAGE RENAL DISEASE
  3. PREDNISONE. [Suspect]
     Active Substance: PREDNISONE
     Indication: END STAGE RENAL DISEASE
  4. CALCIUM CARBONATE. [Suspect]
     Active Substance: CALCIUM CARBONATE
     Indication: PRODUCT USED FOR UNKNOWN INDICATION
     Route: 065
  5. CALCIUM CARBONATE. [Suspect]
     Active Substance: CALCIUM CARBONATE
     Indication: END STAGE RENAL DISEASE
  6. WARFARIN [Suspect]
     Active Substance: WARFARIN
     Indication: END STAGE RENAL DISEASE
     Route: 065
  7. IRON SULPHATE [Suspect]
     Active Substance: FERROUS SULFATE ANHYDROUS
     Indication: END STAGE RENAL DISEASE
     Route: 065
  8. PREDNISONE. [Suspect]
     Active Substance: PREDNISONE
     Indication: PRODUCT USED FOR UNKNOWN INDICATION
     Route: 065

REACTIONS (3)
  - Calciphylaxis [Fatal]
  - Contraindicated product administered [Recovering/Resolving]
  - Biliary sepsis [Fatal]
